FAERS Safety Report 4644038-8 (Version None)
Quarter: 2005Q2

REPORT INFORMATION
  Report Type: 
  Country: None (occurrence: None)
  Receive Date: 20050425
  Receipt Date: 20050411
  Transmission Date: 20051028
  Serious: Yes (Hospitalization)
  Sender: FDA-Public Use
  Company Number: FR-BRISTOL-MYERS SQUIBB COMPANY-12931903

PATIENT
  Age: 6 Decade
  Sex: Male

DRUGS (1)
  1. GLUCOVANCE [Suspect]
     Indication: DIABETES MELLITUS
     Route: 048

REACTIONS (1)
  - HYPOGLYCAEMIC COMA [None]
